FAERS Safety Report 16812367 (Version 1)
Quarter: 2019Q3

REPORT INFORMATION
  Report Type: Spontaneous
  Country: FR (occurrence: FR)
  Receive Date: 20190916
  Receipt Date: 20190916
  Transmission Date: 20191005
  Serious: Yes (Hospitalization)
  Sender: FDA-Public Use
  Company Number: FR-MYLANLABS-2019M1086687

PATIENT
  Age: 65 Year
  Sex: Male
  Weight: 85 kg

DRUGS (8)
  1. XYLOCAINE                          /00033402/ [Suspect]
     Active Substance: LIDOCAINE HYDROCHLORIDE
     Indication: ANGIOCARDIOGRAM
     Dosage: 2 MILLILITER, TOTAL
     Route: 058
     Dates: start: 20190402, end: 20190402
  2. NERISONE [Concomitant]
     Active Substance: DIFLUCORTOLONE VALERATE
     Dosage: UNK
  3. DEXERYL                            /01579901/ [Concomitant]
     Active Substance: GLYCERIN\MINERAL OIL\PETROLATUM
     Dosage: UNK
  4. ISOPTINE [Suspect]
     Active Substance: VERAPAMIL HYDROCHLORIDE
     Indication: ANGIOCARDIOGRAM
     Dosage: 2.5 MILLIGRAM, TOTAL
     Route: 041
     Dates: start: 20190402, end: 20190402
  5. ASPEGIC                            /00002703/ [Suspect]
     Active Substance: ASPIRIN DL-LYSINE
     Indication: ANGIOCARDIOGRAM
     Dosage: 250 MILLIGRAM, TOTAL
     Route: 041
     Dates: start: 20190402, end: 20190402
  6. VISIPAQUE [Suspect]
     Active Substance: IODIXANOL
     Indication: ANGIOCARDIOGRAM
     Dosage: 140 MILLILITER, TOTAL
     Route: 041
     Dates: start: 20190402, end: 20190402
  7. BRILIQUE [Suspect]
     Active Substance: TICAGRELOR
     Indication: ANGIOCARDIOGRAM
     Dosage: 2 DOSAGE FORM, TOTAL
     Route: 048
     Dates: start: 20190402, end: 20190402
  8. HEPARINE                           /00027701/ [Suspect]
     Active Substance: HEPARIN SODIUM
     Indication: ANGIOCARDIOGRAM
     Dosage: 6000 INTERNATIONAL UNIT, TOTAL
     Route: 041
     Dates: start: 20190402, end: 20190402

REACTIONS (1)
  - Erythema [Recovered/Resolved]

NARRATIVE: CASE EVENT DATE: 20190402
